FAERS Safety Report 4681493-1 (Version None)
Quarter: 2005Q2

REPORT INFORMATION
  Report Type: 
  Country: None (occurrence: None)
  Receive Date: 20050602
  Receipt Date: 20050517
  Transmission Date: 20051028
  Serious: Yes (Hospitalization, Other)
  Sender: FDA-Public Use
  Company Number: US_0502111670

PATIENT
  Age: 60 Year
  Sex: Male
  Weight: 125 kg

DRUGS (8)
  1. HUMALOG [Suspect]
     Indication: DIABETES MELLITUS NON-INSULIN-DEPENDENT
     Dosage: 85 U DAY
     Dates: start: 19970101
  2. COUMADIN [Concomitant]
  3. VOLTAREN /SCH/(DICLOFENAC POTASSIUM) [Concomitant]
  4. NEXIUM [Concomitant]
  5. XANAX [Concomitant]
  6. LOVENOX [Concomitant]
  7. ADVAIR [Concomitant]
  8. LORAZEPAM [Concomitant]

REACTIONS (63)
  - ABDOMINAL WALL DISORDER [None]
  - ARTHRALGIA [None]
  - ATELECTASIS [None]
  - BACK PAIN [None]
  - BALANCE DISORDER [None]
  - BLOOD GLUCOSE INCREASED [None]
  - CARDIAC MURMUR [None]
  - CARPAL TUNNEL SYNDROME [None]
  - CATARACT [None]
  - CEREBROVASCULAR ACCIDENT [None]
  - CHRONIC OBSTRUCTIVE AIRWAYS DISEASE EXACERBATED [None]
  - CHRONIC OBSTRUCTIVE PULMONARY DISEASE [None]
  - CONSTIPATION [None]
  - DECREASED ACTIVITY [None]
  - DEPRESSION [None]
  - DIABETIC NEUROPATHY [None]
  - DIABETIC RETINOPATHY [None]
  - DIFFICULTY IN WALKING [None]
  - DIZZINESS [None]
  - DRY MOUTH [None]
  - DRY SKIN [None]
  - FALL [None]
  - GAIT DISTURBANCE [None]
  - GASTROOESOPHAGEAL REFLUX DISEASE [None]
  - HYPERKALAEMIA [None]
  - HYPERTENSION [None]
  - HYPOALDOSTERONISM [None]
  - IMPAIRED WORK ABILITY [None]
  - INDURATION [None]
  - IRRITABILITY [None]
  - LOSS OF CONSCIOUSNESS [None]
  - LUMBAR SPINAL STENOSIS [None]
  - LUNG DISORDER [None]
  - MOVEMENT DISORDER [None]
  - NOCTURIA [None]
  - OBESITY [None]
  - OEDEMA [None]
  - OEDEMA PERIPHERAL [None]
  - ORTHOPNOEA [None]
  - OSTEOARTHRITIS [None]
  - PAIN [None]
  - PAIN IN EXTREMITY [None]
  - PNEUMONIA [None]
  - PRURITUS [None]
  - RENAL FAILURE [None]
  - RESPIRATORY DISTRESS [None]
  - ROTATOR CUFF SYNDROME [None]
  - SEXUAL DYSFUNCTION [None]
  - SHOCK HYPOGLYCAEMIC [None]
  - SINUS CONGESTION [None]
  - SINUS TACHYCARDIA [None]
  - SLEEP APNOEA SYNDROME [None]
  - SPINAL COLUMN STENOSIS [None]
  - TEMPERATURE INTOLERANCE [None]
  - THROMBOSIS [None]
  - TINNITUS [None]
  - TREMOR [None]
  - VASCULAR STENOSIS [None]
  - VIRAL INFECTION [None]
  - VISUAL ACUITY REDUCED [None]
  - WEIGHT INCREASED [None]
  - WHEELCHAIR USER [None]
  - WHEEZING [None]
